FAERS Safety Report 17660567 (Version 9)
Quarter: 2021Q2

REPORT INFORMATION
  Report Type: Spontaneous
  Country: US (occurrence: US)
  Receive Date: 20200413
  Receipt Date: 20210408
  Transmission Date: 20210716
  Serious: Yes (Life-Threatening, Hospitalization, Other)
  Sender: FDA-Public Use
  Company Number: US-PFIZER INC-2020148343

PATIENT
  Age: 48 Year
  Sex: Female
  Weight: 104.3 kg

DRUGS (11)
  1. XANAX [Suspect]
     Active Substance: ALPRAZOLAM
     Dosage: 4 MG, DAILY
     Dates: end: 2018
  2. NORVASC [Concomitant]
     Active Substance: AMLODIPINE BESYLATE
     Dosage: 10 MG, DAILY
     Route: 048
  3. XANAX [Suspect]
     Active Substance: ALPRAZOLAM
     Dosage: 2 MG, DAILY
     Route: 048
  4. ACCUPRIL [Concomitant]
     Active Substance: QUINAPRIL HYDROCHLORIDE
     Indication: HYPERTENSION
     Dosage: 40 MG, DAILY
     Route: 048
  5. KEPPRA [Concomitant]
     Active Substance: LEVETIRACETAM
  6. XANAX [Suspect]
     Active Substance: ALPRAZOLAM
     Indication: ANXIETY DISORDER
     Dosage: 1 MG, 4X/DAY
     Route: 048
     Dates: start: 2005, end: 20191020
  7. XANAX [Suspect]
     Active Substance: ALPRAZOLAM
     Indication: BLOOD PRESSURE ABNORMAL
     Dosage: 0.25 MG, 3X/DAY
     Route: 048
  8. XANAX [Suspect]
     Active Substance: ALPRAZOLAM
     Dosage: 4 MG, DAILY
     Route: 048
  9. CELEXA [CELECOXIB] [Concomitant]
     Active Substance: CELECOXIB
     Dosage: 40 MG, DAILY
     Route: 048
  10. XANAX [Suspect]
     Active Substance: ALPRAZOLAM
     Dosage: 0.25 MG, AS NEEDED (PRN)
     Route: 048
     Dates: end: 201807
  11. MAXZIDE [Concomitant]
     Active Substance: HYDROCHLOROTHIAZIDE\TRIAMTERENE
     Dosage: 1 DF, DAILY (1 TAB DAILY PO)
     Route: 048

REACTIONS (16)
  - Near death experience [Unknown]
  - Tachycardia [Unknown]
  - Cerebral disorder [Unknown]
  - Seizure [Unknown]
  - Drug withdrawal convulsions [Unknown]
  - Weight decreased [Unknown]
  - Bradyphrenia [Unknown]
  - Hypoglycaemia [Unknown]
  - Weight increased [Unknown]
  - Abnormal behaviour [Unknown]
  - Drug dependence [Unknown]
  - Memory impairment [Unknown]
  - Impaired work ability [Not Recovered/Not Resolved]
  - Coma [Unknown]
  - Mental impairment [Unknown]
  - Hypokalaemia [Unknown]

NARRATIVE: CASE EVENT DATE: 2014
